FAERS Safety Report 4709772-X (Version None)
Quarter: 2005Q3

REPORT INFORMATION
  Report Type: 
  Country: None (occurrence: None)
  Receive Date: 20050707
  Receipt Date: 20050615
  Transmission Date: 20060218
  Serious: Yes (Other)
  Sender: FDA-Public Use
  Company Number: US_0506118540

PATIENT
  Age: 48 Year
  Sex: Male
  Weight: 123 kg

DRUGS (8)
  1. ZYPREXA [Suspect]
     Indication: DEPRESSION
     Dosage: 5 MG/1 DAY
     Dates: start: 20010109
  2. DOLOPHINE HCL [Concomitant]
  3. HYDROMORPHONE HCL [Concomitant]
  4. NEURONTIN [Concomitant]
  5. CRESTOR [Concomitant]
  6. SENNA [Concomitant]
  7. ASPIRIN [Concomitant]
  8. CLONAZEPAM [Concomitant]

REACTIONS (5)
  - BLOOD PRESSURE INCREASED [None]
  - DIABETES MELLITUS [None]
  - HAEMATURIA [None]
  - HYPERLIPIDAEMIA [None]
  - MYOCARDIAL INFARCTION [None]
